FAERS Safety Report 6789233-7 (Version None)
Quarter: 2010Q2

REPORT INFORMATION
  Report Type: 
  Country: None (occurrence: None)
  Receive Date: 20100623
  Receipt Date: 20080920
  Transmission Date: 20101027
  Serious: Yes (Other)
  Sender: FDA-Public Use
  Company Number: US-PFIZER INC-2008055443

PATIENT
  Sex: Male

DRUGS (14)
  1. GEODON [Suspect]
     Indication: SCHIZOPHRENIA
     Dates: start: 20080310, end: 20080611
  2. GEODON [Suspect]
     Indication: BIPOLAR I DISORDER
  3. ZOLOFT [Concomitant]
  4. WELLBUTRIN XL [Concomitant]
  5. LAMICTAL [Concomitant]
  6. OMEPRAZOLE [Concomitant]
  7. KEPPRA [Concomitant]
  8. DICLOFENAC [Concomitant]
  9. RELPAX [Concomitant]
  10. OXYCODONE HCL [Concomitant]
  11. VYTORIN [Concomitant]
  12. CARDIZEM [Concomitant]
  13. ABILIFY [Concomitant]
     Dates: start: 20080618
  14. RISPERDAL [Concomitant]
     Dates: end: 20080301

REACTIONS (8)
  - AGITATION [None]
  - DIZZINESS [None]
  - ELECTROCARDIOGRAM QT PROLONGED [None]
  - FATIGUE [None]
  - MALAISE [None]
  - NAUSEA [None]
  - SLEEP APNOEA SYNDROME [None]
  - WEIGHT DECREASED [None]
